FAERS Safety Report 12786333 (Version 1)
Quarter: 2016Q3

REPORT INFORMATION
  Report Type: Spontaneous
  Country: US (occurrence: US)
  Receive Date: 20160927
  Receipt Date: 20160927
  Transmission Date: 20161109
  Serious: No
  Sender: FDA-Public Use
  Company Number: US-FRI-1000086569

PATIENT
  Sex: Female

DRUGS (2)
  1. LINZESS [Suspect]
     Active Substance: LINACLOTIDE
     Dosage: UNK
  2. KONSYL PSYLLIUM FIBER [Concomitant]
     Dosage: EVERY MORNING

REACTIONS (2)
  - Intentional product misuse [Unknown]
  - Drug ineffective [Unknown]
